FAERS Safety Report 17930103 (Version 1)
Quarter: 2020Q2

REPORT INFORMATION
  Report Type: Spontaneous
  Country: US (occurrence: US)
  Receive Date: 20200623
  Receipt Date: 20200623
  Transmission Date: 20200714
  Serious: No
  Sender: FDA-Public Use
  Company Number: None

PATIENT
  Age: 58 Year
  Sex: Female

DRUGS (3)
  1. LASIX [Concomitant]
     Active Substance: FUROSEMIDE
     Dates: start: 20190601
  2. POTASSIUM [Concomitant]
     Active Substance: POTASSIUM
     Dates: start: 20190601
  3. AIMOVIG [Suspect]
     Active Substance: ERENUMAB-AOOE

REACTIONS (3)
  - Hypoaesthesia [None]
  - Contusion [None]
  - Pollakiuria [None]

NARRATIVE: CASE EVENT DATE: 20200623
